FAERS Safety Report 9862288 (Version 1)
Quarter: 2014Q1

REPORT INFORMATION
  Report Type: Spontaneous
  Country: US (occurrence: US)
  Receive Date: 20140203
  Receipt Date: 20140203
  Transmission Date: 20141002
  Serious: Yes (Hospitalization)
  Sender: FDA-Public Use
  Company Number: US-BRISTOL-MYERS SQUIBB COMPANY-20082582

PATIENT
  Age: 76 Year
  Sex: Male
  Weight: 94.78 kg

DRUGS (10)
  1. SPRYCEL [Suspect]
     Indication: CHRONIC MYELOID LEUKAEMIA
     Dosage: DOSE REDUCED TO 50 MG
     Dates: start: 20120515
  2. METOPROLOL [Concomitant]
  3. FOLIC ACID [Concomitant]
  4. ALLOPURINOL [Concomitant]
  5. QUINAPRIL [Concomitant]
  6. POTASSIUM CITRATE [Concomitant]
  7. LOVAZA [Concomitant]
     Dosage: 2 CAPS
  8. ASPIRIN [Concomitant]
  9. LIPITOR [Concomitant]
  10. VITAMIN D [Concomitant]

REACTIONS (3)
  - Prostatic disorder [Unknown]
  - Haemothorax [Unknown]
  - Diarrhoea [Unknown]
